FAERS Safety Report 5545930-2 (Version None)
Quarter: 2007Q4

REPORT INFORMATION
  Report Type: 
  Country: None (occurrence: None)
  Receive Date: 20071211
  Receipt Date: 20071107
  Transmission Date: 20080405
  Serious: No
  Sender: FDA-Public Use
  Company Number: US-ASTRAZENECA-2007UW25599

PATIENT
  Age: 55 Year
  Sex: Female

DRUGS (4)
  1. SYMBICORT [Suspect]
     Dosage: 160/4.5, 2 PUFFS BID
     Route: 055
     Dates: start: 20071024, end: 20071025
  2. SYMBICORT [Suspect]
     Dosage: 160/4.5, 2 INHALATIONS BID
     Route: 055
     Dates: start: 20071101
  3. GABAPENTIN [Concomitant]
     Indication: NEUROPATHY PERIPHERAL
  4. XOPENEX [Concomitant]
     Dosage: TID PRN

REACTIONS (1)
  - CHRONIC OBSTRUCTIVE PULMONARY DISEASE [None]
